FAERS Safety Report 13232667 (Version 1)
Quarter: 2017Q1

REPORT INFORMATION
  Report Type: Spontaneous
  Country: TR (occurrence: TR)
  Receive Date: 20170214
  Receipt Date: 20170214
  Transmission Date: 20170428
  Serious: Yes (Life-Threatening, Other)
  Sender: FDA-Public Use
  Company Number: TR-BAYER-2017-027440

PATIENT
  Age: 20 Year
  Sex: Female

DRUGS (3)
  1. CIPROXIN [Suspect]
     Active Substance: CIPROFLOXACIN
     Indication: RHINORRHOEA
     Route: 048
  2. CIPROXIN [Suspect]
     Active Substance: CIPROFLOXACIN
     Indication: DIARRHOEA
  3. CIPROXIN [Suspect]
     Active Substance: CIPROFLOXACIN
     Indication: VOMITING

REACTIONS (2)
  - Toxic epidermal necrolysis [Recovered/Resolved]
  - Drug reaction with eosinophilia and systemic symptoms [Recovered/Resolved]
